FAERS Safety Report 19156285 (Version 1)
Quarter: 2021Q2

REPORT INFORMATION
  Report Type: Report from Study
  Country: US (occurrence: US)
  Receive Date: 20210420
  Receipt Date: 20210420
  Transmission Date: 20210717
  Serious: Yes (Hospitalization)
  Sender: FDA-Public Use
  Company Number: US-NOVOPROD-803107

PATIENT
  Sex: Male

DRUGS (1)
  1. OZEMPIC [Suspect]
     Active Substance: SEMAGLUTIDE
     Indication: DIABETES MELLITUS
     Dosage: 1 MG
     Route: 058

REACTIONS (5)
  - Condition aggravated [Unknown]
  - Balance disorder [Recovered/Resolved]
  - Weight decreased [Unknown]
  - Chronic kidney disease [Unknown]
  - Decreased appetite [Unknown]
